FAERS Safety Report 4534831-4 (Version None)
Quarter: 2004Q4

REPORT INFORMATION
  Report Type: 
  Country: None (occurrence: None)
  Receive Date: 20041222
  Receipt Date: 20040409
  Transmission Date: 20050328
  Serious: No
  Sender: FDA-Public Use
  Company Number: US-BRISTOL-MYERS SQUIBB COMPANY-12556940

PATIENT
  Age: 71 Year
  Sex: Male
  Weight: 77 kg

DRUGS (7)
  1. PRAVACHOL [Suspect]
     Indication: BLOOD CHOLESTEROL INCREASED
     Dosage: STOPPED 27-FEB-2004 AND RESUMED MAR-2004 FOR 3-4 DAYS.
     Route: 048
     Dates: start: 20040114, end: 20040301
  2. BACTRIM [Suspect]
     Indication: PROSTATITIS
     Dosage: DOSAGE FORM = TABLETS
     Route: 048
     Dates: start: 20040212, end: 20040224
  3. ASPIRIN [Concomitant]
  4. VITAMIN C [Concomitant]
  5. VITAMIN B COMPLEX CAP [Concomitant]
  6. VITAMIN E [Concomitant]
  7. SAW PALMETTO [Concomitant]

REACTIONS (3)
  - FATIGUE [None]
  - PROSTATITIS [None]
  - VITH NERVE PARALYSIS [None]
